FAERS Safety Report 24621973 (Version 1)
Quarter: 2024Q4

REPORT INFORMATION
  Report Type: Spontaneous
  Country: US (occurrence: US)
  Receive Date: 20241114
  Receipt Date: 20241114
  Transmission Date: 20250114
  Serious: Yes (Other)
  Sender: BIOMARIN
  Company Number: US-BIOMARINAP-US-2024-161806

PATIENT

DRUGS (1)
  1. BRINEURA [Suspect]
     Active Substance: CERLIPONASE ALFA
     Indication: Neuronal ceroid lipofuscinosis
     Route: 065

REACTIONS (6)
  - Seizure [Unknown]
  - Vomiting [Unknown]
  - Dyskinesia [Unknown]
  - Aura [Unknown]
  - Abdominal discomfort [Unknown]
  - Eye movement disorder [Unknown]

NARRATIVE: CASE EVENT DATE: 20241110
